FAERS Safety Report 9688240 (Version 2)
Quarter: 2013Q4

REPORT INFORMATION
  Report Type: Report from Study
  Country: CA (occurrence: CA)
  Receive Date: 20131114
  Receipt Date: 20131119
  Transmission Date: 20140711
  Serious: Yes (Other)
  Sender: FDA-Public Use
  Company Number: CA-JNJFOC-20131105117

PATIENT
  Sex: Female
  Weight: 130 kg

DRUGS (2)
  1. REMICADE [Suspect]
     Indication: CROHN^S DISEASE
     Route: 042
     Dates: start: 2001
  2. REMICADE [Suspect]
     Indication: CROHN^S DISEASE
     Dosage: PATIENT HAS BEEN ON INFLIXIMAB FOR 12 YEARS
     Route: 042

REACTIONS (2)
  - Coeliac disease [Unknown]
  - Weight decreased [Unknown]
